FAERS Safety Report 19877881 (Version 2)
Quarter: 2021Q3

REPORT INFORMATION
  Report Type: Report from Study
  Country: IE (occurrence: IE)
  Receive Date: 20210924
  Receipt Date: 20210929
  Transmission Date: 20211014
  Serious: Yes (Hospitalization)
  Sender: FDA-Public Use
  Company Number: IE-BEH-2021134878

PATIENT
  Sex: Male
  Weight: 64 kg

DRUGS (1)
  1. ZEMAIRA [Suspect]
     Active Substance: .ALPHA.1-PROTEINASE INHIBITOR HUMAN
     Indication: ALPHA-1 ANTITRYPSIN DEFICIENCY
     Dosage: 60 MILLIGRAM
     Route: 042
     Dates: start: 20161112, end: 20210909

REACTIONS (5)
  - Lower respiratory tract infection [Unknown]
  - Ascites [Unknown]
  - Therapy interrupted [Unknown]
  - No adverse event [Unknown]
  - Dyspnoea [Unknown]

NARRATIVE: CASE EVENT DATE: 2021
